FAERS Safety Report 19171682 (Version 3)
Quarter: 2021Q3

REPORT INFORMATION
  Report Type: Report from Study
  Country: US (occurrence: US)
  Receive Date: 20210423
  Receipt Date: 20210908
  Transmission Date: 20211014
  Serious: Yes (Hospitalization)
  Sender: FDA-Public Use
  Company Number: US-B.I. PHARMACEUTICALS,INC./RIDGEFIELD-2021-BI-076191

PATIENT
  Age: 57 Year
  Sex: Female
  Weight: 55.34 kg

DRUGS (3)
  1. OFEV [Suspect]
     Active Substance: NINTEDANIB
     Route: 048
  2. OFEV [Suspect]
     Active Substance: NINTEDANIB
     Route: 048
  3. OFEV [Suspect]
     Active Substance: NINTEDANIB
     Indication: IDIOPATHIC PULMONARY FIBROSIS
     Dosage: OFEV DOSE 300MG DAILY
     Route: 048
     Dates: start: 20210111

REACTIONS (10)
  - Diarrhoea [Recovering/Resolving]
  - Dehydration [Unknown]
  - Haematochezia [Unknown]
  - Blood potassium decreased [Unknown]
  - COVID-19 [Unknown]
  - Weight decreased [Unknown]
  - Transfusion [Unknown]
  - Blood iron decreased [Unknown]
  - Loss of consciousness [Unknown]
  - Dry mouth [Unknown]

NARRATIVE: CASE EVENT DATE: 2021
